FAERS Safety Report 14236751 (Version 2)
Quarter: 2017Q4

REPORT INFORMATION
  Report Type: Spontaneous
  Country: CN (occurrence: CN)
  Receive Date: 20171129
  Receipt Date: 20171201
  Transmission Date: 20180321
  Serious: Yes (Other)
  Sender: FDA-Public Use
  Company Number: CN-ASCEND THERAPEUTICS-2036265

PATIENT
  Age: 21 Year
  Sex: Female

DRUGS (3)
  1. ESTROGEL [Suspect]
     Active Substance: ESTRADIOL
     Indication: ENDOMETRIAL DISORDER
     Route: 062
     Dates: start: 20171020, end: 20171121
  2. UTROGESTAN 100 MG (MICRONIZED PROGESTERONE) [Concomitant]
     Route: 067
     Dates: start: 20171103
  3. YIMAXIN (PROGESTERONE) [Concomitant]

REACTIONS (5)
  - Application site pruritus [Recovered/Resolved]
  - Allergy to chemicals [Recovering/Resolving]
  - Pruritus [Recovered/Resolved]
  - Off label use [None]
  - Application site rash [Recovering/Resolving]

NARRATIVE: CASE EVENT DATE: 20171020
